FAERS Safety Report 23731692 (Version 2)
Quarter: 2024Q3

REPORT INFORMATION
  Report Type: Spontaneous
  Country: US (occurrence: US)
  Receive Date: 20240411
  Receipt Date: 20240927
  Transmission Date: 20241017
  Serious: Yes (Other)
  Sender: CATALYST PHARMA
  Company Number: US-CATALYST PHARMACEUTICALS, INC-US-CATA-24-00109

PATIENT
  Age: 4 Year
  Sex: Male
  Weight: 18.095 kg

DRUGS (4)
  1. FIRDAPSE [Suspect]
     Active Substance: AMIFAMPRIDINE PHOSPHATE
     Indication: Congenital myasthenic syndrome
     Dosage: DISSOLVE 1 TABLET IN 10 ML OF WATER AND GIVE 2.5 ML TWICE DAILY FOR 7 DAYS, THEN 2.5 ML THREE TIMES
     Route: 048
     Dates: start: 20231116
  2. FIRDAPSE [Suspect]
     Active Substance: AMIFAMPRIDINE PHOSPHATE
     Dosage: DISSOLVE 1 TABLET IN 10 ML OF WATER TWICE DAILY, AND TAKE 4 ML BY MOUTH THREE TIMES A DAY
     Route: 048
     Dates: start: 20240815
  3. PHENAZOPYRIDINE [Concomitant]
     Active Substance: PHENAZOPYRIDINE
     Indication: Product used for unknown indication
     Dosage: 100 MG DAILY
     Route: 065
  4. MOTRIN [Concomitant]
     Active Substance: IBUPROFEN
     Indication: Product used for unknown indication
     Dosage: 200 MG AS NEEDED
     Route: 065

REACTIONS (3)
  - Pneumonia [Recovered/Resolved]
  - Tonsillectomy [Recovered/Resolved]
  - Off label use [Unknown]

NARRATIVE: CASE EVENT DATE: 20231116
